FAERS Safety Report 9324298 (Version 3)
Quarter: 2014Q4

REPORT INFORMATION
  Report Type: Report from Study
  Country: US (occurrence: US)
  Receive Date: 20130603
  Receipt Date: 20141205
  Transmission Date: 20150529
  Serious: Yes (Hospitalization, Other)
  Sender: FDA-Public Use
  Company Number: US-NAPPMUNDI-USA-2013-0101650

PATIENT
  Age: 61 Year
  Sex: Female

DRUGS (1)
  1. OXYCONTIN [Suspect]
     Active Substance: OXYCODONE HYDROCHLORIDE
     Indication: PAIN
     Dosage: 40 MG, 4 TABLETS IN THE  AM AND 3 TABLETS IN THE EVENING
     Route: 048

REACTIONS (4)
  - Urinary incontinence [Unknown]
  - Nephrolithiasis [Recovered/Resolved]
  - Urinary tract infection [Recovered/Resolved]
  - Cellulitis [Recovered/Resolved]

NARRATIVE: CASE EVENT DATE: 20130128
